FAERS Safety Report 21475860 (Version 1)
Quarter: 2022Q4

REPORT INFORMATION
  Report Type: Spontaneous
  Country: ES (occurrence: ES)
  Receive Date: 20221019
  Receipt Date: 20221019
  Transmission Date: 20230113
  Serious: Yes (Other)
  Sender: FDA-Public Use
  Company Number: ES-AEMPS-1273808

PATIENT
  Age: 59 Year
  Sex: Male
  Weight: 71 kg

DRUGS (1)
  1. PIPERACILLIN SODIUM\TAZOBACTAM SODIUM [Suspect]
     Active Substance: PIPERACILLIN SODIUM\TAZOBACTAM SODIUM
     Indication: Pancreatitis acute
     Dosage: 1 DOSAGE FORM, FOUR TIMES/DAY ( (4/0.5G/6H)
     Route: 065
     Dates: start: 20220919, end: 20220921

REACTIONS (1)
  - Liver function test abnormal [Recovering/Resolving]

NARRATIVE: CASE EVENT DATE: 20220920
